FAERS Safety Report 15985478 (Version 1)
Quarter: 2019Q1

REPORT INFORMATION
  Report Type: Spontaneous
  Country: FR (occurrence: FR)
  Receive Date: 20190220
  Receipt Date: 20190220
  Transmission Date: 20190418
  Serious: Yes (Death, Congenital Anomaly)
  Sender: FDA-Public Use
  Company Number: FR-JNJFOC-20190221110

PATIENT
  Sex: Female
  Weight: 1.09 kg

DRUGS (1)
  1. TRAMADOL HYDROCHLORIDE. [Suspect]
     Active Substance: TRAMADOL HYDROCHLORIDE
     Indication: SPONDYLITIS
     Route: 064
     Dates: start: 20161224, end: 20161226

REACTIONS (2)
  - Foetal exposure during pregnancy [Unknown]
  - Heart disease congenital [Fatal]

NARRATIVE: CASE EVENT DATE: 20170602
